FAERS Safety Report 5299476-X (Version None)
Quarter: 2007Q2

REPORT INFORMATION
  Report Type: 
  Country: None (occurrence: None)
  Receive Date: 20070417
  Receipt Date: 20070411
  Transmission Date: 20071010
  Serious: Yes (Other)
  Sender: FDA-Public Use
  Company Number: US-ELI_LILLY_AND_COMPANY-US200704002483

PATIENT
  Age: 58 Year
  Sex: Female
  Weight: 76.19 kg

DRUGS (1)
  1. ZYPREXA [Suspect]
     Indication: BIPOLAR DISORDER

REACTIONS (3)
  - HEPATITIS B [None]
  - HEPATITIS C [None]
  - WEIGHT INCREASED [None]
